FAERS Safety Report 22332284 (Version 1)
Quarter: 2023Q2

REPORT INFORMATION
  Report Type: Spontaneous
  Country: US (occurrence: None)
  Receive Date: 20230516
  Receipt Date: 20230516
  Transmission Date: 20230721
  Serious: Yes (Life-Threatening, Hospitalization)
  Sender: FDA-Public Use
  Company Number: None

PATIENT
  Age: 56 Year
  Sex: Male

DRUGS (2)
  1. LUMASON [Suspect]
     Active Substance: SULFUR HEXAFLUORIDE
     Indication: Cardiac imaging procedure
     Dosage: 2 MG INTRAVENOUS BOLUS
     Route: 040
     Dates: start: 20230316, end: 20230316
  2. LUMASON [Concomitant]
     Active Substance: SULFUR HEXAFLUORIDE
     Dates: start: 20230316, end: 20230316

REACTIONS (8)
  - Thirst [None]
  - Seizure [None]
  - Eye movement disorder [None]
  - Ocular hyperaemia [None]
  - Unresponsive to stimuli [None]
  - Blood pressure decreased [None]
  - Oxygen saturation decreased [None]
  - Dyspnoea [None]

NARRATIVE: CASE EVENT DATE: 20230316
